FAERS Safety Report 16671434 (Version 1)
Quarter: 2019Q3

REPORT INFORMATION
  Report Type: Report from Study
  Country: None (occurrence: JP)
  Receive Date: 20190806
  Receipt Date: 20190806
  Transmission Date: 20191004
  Serious: Yes (Hospitalization)
  Sender: FDA-Public Use
  Company Number: JP-ABBVIE-19S-087-2618579-00

PATIENT
  Age: 67 Year
  Sex: Female
  Weight: 59 kg

DRUGS (8)
  1. DUODOPA [Suspect]
     Active Substance: CARBIDOPA\LEVODOPA
     Dosage: ABOUT 38 TO 40 ML/DAY MD: 6 ML CD: 2.1 ML/HR ? 16 HRS
     Route: 050
     Dates: start: 20181217, end: 20181222
  2. DUODOPA [Suspect]
     Active Substance: CARBIDOPA\LEVODOPA
     Indication: PARKINSON^S DISEASE
     Dosage: MD: 3 ML CD: 2 ML/HR ? 16 HRS
     Route: 050
     Dates: start: 20181204, end: 20181216
  3. ROTIGOTINE [Concomitant]
     Active Substance: ROTIGOTINE
     Indication: PARKINSON^S DISEASE
     Dosage: EVERY DAY
     Route: 062
     Dates: end: 20181212
  4. DUODOPA [Suspect]
     Active Substance: CARBIDOPA\LEVODOPA
     Dosage: MD: 6.5 ML CD: 2.2 ML/HR ? 16 HRS ED: 1 ML/UNIT ? 1
     Route: 050
     Dates: start: 20181222, end: 20190205
  5. ROTIGOTINE [Concomitant]
     Active Substance: ROTIGOTINE
     Route: 062
     Dates: start: 20181220
  6. DUODOPA [Suspect]
     Active Substance: CARBIDOPA\LEVODOPA
     Dosage: MD: 6.5 ML CD: 2.4 ML/HR ? 16 HRS ED: 1 ML/UNIT ? 1
     Route: 050
     Dates: start: 20190205, end: 20190305
  7. ROTIGOTINE [Concomitant]
     Active Substance: ROTIGOTINE
     Route: 062
     Dates: start: 20181213, end: 20181219
  8. DUODOPA [Suspect]
     Active Substance: CARBIDOPA\LEVODOPA
     Dosage: MD: 6.5 ML CD: 2.5 ML/HR ? 16 HRS ED: 1 ML/UNIT ? 1
     Route: 050
     Dates: start: 20190305

REACTIONS (14)
  - Ageusia [Unknown]
  - Decreased appetite [Unknown]
  - Weight decreased [Unknown]
  - Hypoaesthesia [Unknown]
  - Medical device site papule [Unknown]
  - Medical device pain [Unknown]
  - Constipation [Unknown]
  - Insomnia [Unknown]
  - Stoma site discharge [Recovering/Resolving]
  - Mobility decreased [Recovering/Resolving]
  - Physical deconditioning [Unknown]
  - Pain [Unknown]
  - Dysgeusia [Unknown]
  - Stoma site extravasation [Unknown]
